FAERS Safety Report 9503003 (Version 1)
Quarter: 2013Q1

REPORT INFORMATION
  Report Type: Spontaneous
  Country: US (occurrence: None)
  Receive Date: 20130226
  Receipt Date: 20130226
  Transmission Date: 20140127
  Serious: Yes (Disabling, Other)
  Sender: FDA-Public Use
  Company Number: PHEH2012US002985

PATIENT
  Age: 73 Year
  Sex: Female
  Weight: 112 kg

DRUGS (4)
  1. TOBI [Suspect]
     Indication: BRONCHIECTASIS
  2. TOBI [Suspect]
     Indication: PNEUMONIA PSEUDOMONAS AERUGINOSA
  3. TOBI [Suspect]
     Indication: DISEASE RECURRENCE
  4. VFEND [Concomitant]

REACTIONS (1)
  - Aphonia [None]
